FAERS Safety Report 6816877-6 (Version None)
Quarter: 2010Q3

REPORT INFORMATION
  Report Type: 
  Country: None (occurrence: None)
  Receive Date: 20100706
  Receipt Date: 20100629
  Transmission Date: 20110219
  Serious: Yes (Death, Hospitalization)
  Sender: FDA-Public Use
  Company Number: DE-WYE-G06077410

PATIENT
  Sex: Female
  Weight: 80 kg

DRUGS (16)
  1. TORISEL [Suspect]
     Indication: METASTATIC RENAL CELL CARCINOMA
     Route: 042
     Dates: start: 20090210, end: 20090930
  2. TORISEL [Suspect]
     Route: 042
     Dates: start: 20091014, end: 20091028
  3. TORISEL [Suspect]
     Route: 042
     Dates: start: 20091118, end: 20091230
  4. TORISEL [Suspect]
     Route: 042
     Dates: start: 20100113, end: 20100127
  5. TORISEL [Suspect]
     Route: 042
     Dates: start: 20100224, end: 20100406
  6. METOPROLOL TARTRATE [Concomitant]
     Dosage: 100 MG, FREQUENCY UNKNOWN
     Route: 048
  7. ALLOPURINOL [Concomitant]
     Dosage: 100 MG, FREQUENCY UNKNOWN
     Route: 048
  8. OLMETEC [Concomitant]
     Dosage: 20 MG, FREQUENCY UNKNOWN
     Route: 048
  9. CLEMASTINE FUMARATE [Concomitant]
     Indication: PREMEDICATION
     Dosage: 2 MG PRIOR TO TORISEL ADMINISTRATION
     Route: 042
     Dates: start: 20090210
  10. THEOPHYLLINE [Concomitant]
     Dosage: 400 MG RETARD FORMULATION, FREQUENCY UNKNOWN
     Route: 048
  11. ACETYLSALICYLIC ACID [Concomitant]
     Dosage: 100 MG, FREQUENCY UNKNOWN
     Route: 048
  12. IBUPROFEN [Concomitant]
     Dosage: 600 MG, FREQUENCY UNKNOWN
     Route: 048
  13. VERTIGOHEEL [Concomitant]
  14. INSULIN ACTRAPHANE [Concomitant]
  15. MOXONIDINE [Concomitant]
  16. TORASEMIDE [Concomitant]
     Dosage: 10 MG, FREQUENCY UNKNOWN
     Route: 048

REACTIONS (8)
  - ATRIAL FIBRILLATION [None]
  - CARDIAC FAILURE [None]
  - CONDITION AGGRAVATED [None]
  - DIVERTICULUM INTESTINAL [None]
  - PERITONITIS [None]
  - RENAL FAILURE [None]
  - RESPIRATORY FAILURE [None]
  - SEPTIC SHOCK [None]
